FAERS Safety Report 7103301-1 (Version None)
Quarter: 2010Q4

REPORT INFORMATION
  Report Type: 
  Country: None (occurrence: None)
  Receive Date: 20101115
  Receipt Date: 20070723
  Transmission Date: 20110411
  Serious: Yes (Life-Threatening, Hospitalization)
  Sender: FDA-Public Use
  Company Number: PHBS2007FI12363

PATIENT
  Sex: Male

DRUGS (14)
  1. VALSARTAN  AND HYDROCHLOROTHIAZIDE [Suspect]
     Indication: HYPERTENSION
     Dosage: VALS 80 / HCT 12.5 MG/DAY
     Route: 048
     Dates: start: 20070226, end: 20070227
  2. ARTHRYL [Concomitant]
     Dosage: 1.5 G, UNK
  3. ZOLT [Concomitant]
     Dosage: 15 MG, UNK
  4. EMGESAN [Concomitant]
     Dosage: 250 MG, UNK
  5. LITALGIN [Concomitant]
  6. MOBIC [Concomitant]
     Dosage: 7.5 MG, PRN
  7. BURANA [Concomitant]
     Dosage: 600 MG, PRN
  8. PANADOL FORTE [Concomitant]
     Dosage: 1 G, PRN
  9. PRIMASPAN [Concomitant]
     Dosage: 100 MG, UNK
  10. OMEPRAZOLE [Concomitant]
     Dosage: 40 MG/DAY
     Route: 048
  11. GAVISCON [Concomitant]
     Route: 048
  12. CARDACE [Concomitant]
     Dosage: 2.5 MG, UNK
  13. ORLOC [Concomitant]
     Dosage: 5 MG, UNK
  14. FURESIS [Concomitant]
     Dosage: 40 MG, UNK

REACTIONS (7)
  - C-REACTIVE PROTEIN INCREASED [None]
  - DYSPNOEA [None]
  - HYPOTONIA [None]
  - LUNG DISORDER [None]
  - LUNG INFILTRATION [None]
  - PULMONARY OEDEMA [None]
  - WHITE BLOOD CELL COUNT INCREASED [None]
